FAERS Safety Report 4665591-4 (Version None)
Quarter: 2005Q2

REPORT INFORMATION
  Report Type: 
  Country: None (occurrence: None)
  Receive Date: 20050518
  Receipt Date: 20050518
  Transmission Date: 20051028
  Serious: Yes (Hospitalization)
  Sender: FDA-Public Use
  Company Number: None

PATIENT
  Age: 19 Year
  Sex: Male
  Weight: 62 kg

DRUGS (2)
  1. PEGASPARGASE [Suspect]
     Indication: ACUTE LYMPHOCYTIC LEUKAEMIA
     Dosage: 2400 UNITS ONCE IM
     Route: 030
     Dates: start: 20050429, end: 20050429
  2. METHOTREXATE [Suspect]
     Indication: ACUTE LYMPHOCYTIC LEUKAEMIA
     Dosage: 15 MG ONCE INTRATHECAL
     Route: 037
     Dates: start: 20050503, end: 20050503

REACTIONS (2)
  - HYPERGLYCAEMIA [None]
  - PANCREATITIS [None]
